FAERS Safety Report 4469713-X (Version None)
Quarter: 2004Q4

REPORT INFORMATION
  Report Type: 
  Country: None (occurrence: None)
  Receive Date: 20041008
  Receipt Date: 20041001
  Transmission Date: 20050328
  Serious: Yes (Life-Threatening, Hospitalization, Disabling, Other)
  Sender: FDA-Public Use
  Company Number: US-MERCK-0410USA00134

PATIENT
  Age: 73 Year
  Sex: Female

DRUGS (2)
  1. VIOXX [Suspect]
     Route: 048
     Dates: start: 19970101
  2. VIOXX [Suspect]
     Route: 048

REACTIONS (3)
  - ARTERIAL OCCLUSIVE DISEASE [None]
  - BLOOD PRESSURE INCREASED [None]
  - DYSPNOEA [None]
